FAERS Safety Report 20562065 (Version 1)
Quarter: 2022Q1

REPORT INFORMATION
  Report Type: Spontaneous
  Country: CZ (occurrence: CZ)
  Receive Date: 20220307
  Receipt Date: 20220307
  Transmission Date: 20220423
  Serious: Yes (Other)
  Sender: FDA-Public Use
  Company Number: CZ-NOVARTISPH-NVSC2022CZ011003

PATIENT
  Age: 70 Year
  Sex: Male

DRUGS (5)
  1. AFINITOR [Suspect]
     Active Substance: EVEROLIMUS
     Indication: Renal cancer metastatic
     Dosage: 10 MG, QD
     Route: 065
     Dates: start: 20200707
  2. AFINITOR [Suspect]
     Active Substance: EVEROLIMUS
     Indication: Metastases to lung
     Dosage: 5 MG, QD (REDUCED DOSE (5MG PER DAY,AFTER 28 DAYS))
     Route: 065
     Dates: end: 20201201
  3. HYDROCORTISONE [Concomitant]
     Active Substance: HYDROCORTISONE
     Indication: Glucocorticoid deficiency
     Dosage: UNK
     Route: 065
  4. ALLOPURINOL [Concomitant]
     Active Substance: ALLOPURINOL
     Indication: Product used for unknown indication
     Dosage: 100 MG, BID
     Route: 065
     Dates: start: 2012
  5. TAMSULOSIN [Concomitant]
     Active Substance: TAMSULOSIN
     Indication: Product used for unknown indication
     Dosage: 1 DOSAGE FORM, QD (0.4, 1 TABLET IN THE EVENING)
     Route: 065
     Dates: start: 2012

REACTIONS (8)
  - Renal cancer metastatic [Unknown]
  - Malignant neoplasm progression [Unknown]
  - Burning sensation mucosal [Recovering/Resolving]
  - Gingival pain [Recovering/Resolving]
  - Rash [Recovering/Resolving]
  - Pruritus [Recovering/Resolving]
  - Mastication disorder [Recovering/Resolving]
  - Drug intolerance [Unknown]

NARRATIVE: CASE EVENT DATE: 20200720
